FAERS Safety Report 12264188 (Version 1)
Quarter: 2016Q2

REPORT INFORMATION
  Report Type: Spontaneous
  Country: US (occurrence: US)
  Receive Date: 20160413
  Receipt Date: 20160413
  Transmission Date: 20160815
  Serious: No
  Sender: FDA-Public Use
  Company Number: US-JNJFOC-20160301916

PATIENT
  Age: 66 Year
  Sex: Female
  Weight: 72.58 kg

DRUGS (16)
  1. ANTI INFLAMMATORY [Concomitant]
     Indication: PLANTAR FASCIITIS
     Dates: start: 20160223
  2. CINNAMON. [Concomitant]
     Active Substance: CINNAMON
     Indication: NUTRITIONAL SUPPLEMENTATION
     Dosage: COUPLE OF WEEKS
     Route: 065
  3. SELENIUM [Concomitant]
     Active Substance: SELENIUM
     Indication: THYROID DISORDER
     Dosage: 5-6 YEARS
     Route: 065
  4. SIMVASTATIN. [Concomitant]
     Active Substance: SIMVASTATIN
     Indication: BLOOD CHOLESTEROL INCREASED
     Dosage: YEARS
     Route: 065
  5. WOMENS ROGAINE UNSCENTED [Suspect]
     Active Substance: MINOXIDIL
     Route: 061
  6. WOMENS ROGAINE UNSCENTED [Suspect]
     Active Substance: MINOXIDIL
     Indication: ALOPECIA
     Dosage: HALF CAPFUL AMOUNT
     Route: 061
  7. FISH OIL OMEGA 3 [Concomitant]
     Indication: ROUTINE HEALTH MAINTENANCE
     Dosage: COUPLE OF WEEKS
     Route: 065
  8. ARMOUR THYROID [Concomitant]
     Active Substance: THYROID, PORCINE
     Indication: BASEDOW^S DISEASE
     Dosage: YEARS
     Route: 065
  9. FINASTERIDE. [Concomitant]
     Active Substance: FINASTERIDE
     Indication: NUTRITIONAL SUPPLEMENTATION
     Dosage: 5-6 YEARS
     Route: 065
  10. COENZYME Q10 [Concomitant]
     Active Substance: UBIDECARENONE
     Indication: ROUTINE HEALTH MAINTENANCE
     Dosage: YEARS
     Route: 065
  11. ONE A DAY WOMEN^S [Concomitant]
     Active Substance: MINERALS\VITAMINS
     Indication: ROUTINE HEALTH MAINTENANCE
     Dosage: MORE THAN 10 YEARS
     Route: 065
  12. YEAST [Concomitant]
     Active Substance: YEAST
     Indication: BLOOD PRESSURE MEASUREMENT
     Dosage: FEW MONTHS
  13. PRISTIQ EXTENDED-RELEASE [Concomitant]
     Active Substance: DESVENLAFAXINE SUCCINATE
     Indication: ANXIETY
     Dosage: 4-5 YEARS
     Route: 065
  14. YEAST [Concomitant]
     Active Substance: YEAST
     Indication: BLOOD CHOLESTEROL
     Dosage: FEW MONTHS
  15. VITAMIN B12 [Concomitant]
     Active Substance: CYANOCOBALAMIN
     Indication: ROUTINE HEALTH MAINTENANCE
     Dosage: 1-2 YEARS
     Route: 065
  16. CORTICOSTEROID NOS [Concomitant]
     Active Substance: CORTICOSTEROID NOS
     Indication: ARTHRALGIA
     Route: 065
     Dates: start: 20160222

REACTIONS (2)
  - Blood pressure increased [Not Recovered/Not Resolved]
  - Hair texture abnormal [Not Recovered/Not Resolved]

NARRATIVE: CASE EVENT DATE: 201602
